FAERS Safety Report 9607021 (Version 2)
Quarter: 2013Q4

REPORT INFORMATION
  Report Type: Spontaneous
  Country: DE (occurrence: DE)
  Receive Date: 20131009
  Receipt Date: 20131021
  Transmission Date: 20140711
  Serious: Yes (Hospitalization, Other)
  Sender: FDA-Public Use
  Company Number: DE-ROCHE-1283105

PATIENT
  Age: 47 Year
  Sex: Male
  Weight: 98 kg

DRUGS (22)
  1. VALCYTE [Suspect]
     Indication: ANTIVIRAL PROPHYLAXIS
     Route: 048
     Dates: start: 20120830, end: 20121211
  2. VALCYTE [Suspect]
     Route: 048
     Dates: start: 20121212
  3. MYCOPHENOLATE MOFETIL [Concomitant]
     Indication: IMMUNOSUPPRESSION
     Route: 048
     Dates: start: 20120829, end: 20130321
  4. PREDNISOLON [Concomitant]
     Indication: IMMUNOSUPPRESSION
     Route: 048
     Dates: start: 20120926
  5. TACROLIMUS [Concomitant]
     Indication: IMMUNOSUPPRESSION
     Route: 048
     Dates: start: 20120829, end: 20130530
  6. CYCLOSPORIN [Concomitant]
     Indication: IMMUNOSUPPRESSION
     Route: 048
     Dates: start: 20130530
  7. EVEROLIMUS [Concomitant]
     Indication: IMMUNOSUPPRESSION
     Route: 048
     Dates: start: 20130530, end: 20130913
  8. SANDIMMUN [Concomitant]
     Route: 048
  9. SANDIMMUN [Concomitant]
     Route: 048
  10. COTRIM [Concomitant]
     Route: 048
  11. CIPRO [Concomitant]
     Route: 048
  12. MOXONIDIN [Concomitant]
     Route: 065
  13. CALCIUMACETAT-NEFRO [Concomitant]
     Route: 048
  14. L-THYROXIN [Concomitant]
     Route: 048
  15. CLEXANE [Concomitant]
     Route: 065
  16. PANTOZOL (GERMANY) [Concomitant]
     Route: 048
  17. DEKRISTOL [Concomitant]
     Route: 048
  18. MCP [Concomitant]
     Route: 065
  19. NEPHROTRANS [Concomitant]
     Route: 065
  20. ARANESP [Concomitant]
     Route: 065
  21. FOLSAN [Concomitant]
     Route: 065
  22. TOREM [Concomitant]
     Route: 065

REACTIONS (4)
  - Cytomegalovirus colitis [Recovered/Resolved]
  - Pneumonia cytomegaloviral [Recovered/Resolved]
  - Cytomegalovirus infection [Not Recovered/Not Resolved]
  - Drug resistance [Unknown]
